FAERS Safety Report 12633821 (Version 2)
Quarter: 2016Q3

REPORT INFORMATION
  Report Type: Spontaneous
  Country: PT (occurrence: PT)
  Receive Date: 20160808
  Receipt Date: 20160811
  Transmission Date: 20161109
  Serious: Yes (Hospitalization, Other)
  Sender: FDA-Public Use
  Company Number: PT-JNJFOC-20160804668

PATIENT
  Age: 53 Year
  Sex: Female

DRUGS (8)
  1. RISPERIDONE. [Suspect]
     Active Substance: RISPERIDONE
     Indication: MAJOR DEPRESSION
     Route: 065
  2. RISPERIDONE. [Suspect]
     Active Substance: RISPERIDONE
     Indication: MAJOR DEPRESSION
     Route: 065
  3. ATROPINE. [Concomitant]
     Active Substance: ATROPINE
     Route: 065
  4. BUPROPION. [Interacting]
     Active Substance: BUPROPION
     Indication: MAJOR DEPRESSION
     Dosage: SLOW RELEASE (TITRATED AT 300MG/DAY)
     Route: 065
  5. THIOPENTAL [Concomitant]
     Active Substance: THIOPENTAL
     Route: 065
  6. SERTRALINE [Interacting]
     Active Substance: SERTRALINE HYDROCHLORIDE
     Indication: MAJOR DEPRESSION
     Route: 065
  7. RISPERIDONE. [Suspect]
     Active Substance: RISPERIDONE
     Indication: MAJOR DEPRESSION
     Route: 065
  8. SUCCINYLCHOLINE [Concomitant]
     Active Substance: SUCCINYLCHOLINE

REACTIONS (4)
  - Product use issue [Unknown]
  - Generalised tonic-clonic seizure [Recovered/Resolved]
  - Drug interaction [Unknown]
  - Off label use [Unknown]
